FAERS Safety Report 19038894 (Version 1)
Quarter: 2021Q1

REPORT INFORMATION
  Report Type: Spontaneous
  Country: FR (occurrence: FR)
  Receive Date: 20210322
  Receipt Date: 20210322
  Transmission Date: 20210420
  Serious: Yes (Hospitalization)
  Sender: FDA-Public Use
  Company Number: FR-RK PHARMA, INC-20210300001

PATIENT
  Age: 59 Year
  Sex: Male

DRUGS (6)
  1. MYCOPHENOLIC ACID DR UNSPECIFIED [Suspect]
     Active Substance: MYCOPHENOLIC ACID
     Dosage: DOSE REDUCED
  2. MYCOPHENOLIC ACID DR UNSPECIFIED [Suspect]
     Active Substance: MYCOPHENOLIC ACID
     Dosage: UNK
  3. VALGANCICLOVIR. [Concomitant]
     Active Substance: VALGANCICLOVIR
  4. TACROLIMUS. [Suspect]
     Active Substance: TACROLIMUS
     Dosage: UNKNOWN DOSE
  5. COTRIMOXAZOLE [Concomitant]
     Active Substance: SULFAMETHOXAZOLE\TRIMETHOPRIM
  6. TACROLIMUS. [Suspect]
     Active Substance: TACROLIMUS
     Dosage: DOSE REDUCED

REACTIONS (2)
  - COVID-19 [Recovering/Resolving]
  - Viraemia [Recovered/Resolved]

NARRATIVE: CASE EVENT DATE: 202003
